FAERS Safety Report 9155981 (Version 1)
Quarter: 2013Q1

REPORT INFORMATION
  Report Type: Spontaneous
  Country: CA (occurrence: CA)
  Receive Date: 20130311
  Receipt Date: 20130311
  Transmission Date: 20140127
  Serious: Yes (Hospitalization, Other)
  Sender: FDA-Public Use
  Company Number: CA-009507513-1303CAN001121

PATIENT
  Age: 35 Year
  Sex: Female

DRUGS (1)
  1. BETAMETHASONE [Suspect]
     Indication: MATERNAL THERAPY TO ENHANCE FOETAL LUNG MATURITY
     Dosage: 12 MG, ONCE
     Route: 030

REACTIONS (7)
  - Exposure during pregnancy [Unknown]
  - Loss of consciousness [Not Recovered/Not Resolved]
  - Craniectomy [Recovered/Resolved]
  - Haemorrhage [Recovered/Resolved]
  - Disseminated intravascular coagulation [Recovered/Resolved]
  - Caesarean section [Unknown]
  - Somnolence [Unknown]
